FAERS Safety Report 13178014 (Version 1)
Quarter: 2017Q1

REPORT INFORMATION
  Report Type: Report from Study
  Country: AU (occurrence: AU)
  Receive Date: 20170202
  Receipt Date: 20170202
  Transmission Date: 20170428
  Serious: Yes (Other)
  Sender: FDA-Public Use
  Company Number: AU-ROCHE-1887380

PATIENT
  Age: 50 Year
  Sex: Female

DRUGS (7)
  1. LYRICA [Concomitant]
     Active Substance: PREGABALIN
  2. CODEINE [Concomitant]
     Active Substance: CODEINE
  3. ACTEMRA [Suspect]
     Active Substance: TOCILIZUMAB
     Indication: RHEUMATOID ARTHRITIS
     Dosage: DOSE AND UNIT-162MG/0.9ML
     Route: 058
     Dates: start: 20161225, end: 20161226
  4. METHOTREXATE. [Concomitant]
     Active Substance: METHOTREXATE
  5. MOBIC [Concomitant]
     Active Substance: MELOXICAM
  6. SALPRAZ [Concomitant]
  7. LEUCOVORIN. [Concomitant]
     Active Substance: LEUCOVORIN

REACTIONS (10)
  - Diarrhoea [Unknown]
  - Nausea [Unknown]
  - Chest pain [Unknown]
  - Psoriasis [Unknown]
  - Genital blister [Unknown]
  - Lip blister [Unknown]
  - Urticaria [Unknown]
  - Malaise [Unknown]
  - Oral mucosal blistering [Unknown]
  - Skin infection [Unknown]

NARRATIVE: CASE EVENT DATE: 20161226
